FAERS Safety Report 8374615-2 (Version None)
Quarter: 2012Q2

REPORT INFORMATION
  Report Type: 
  Country: None (occurrence: None)
  Receive Date: 20120521
  Receipt Date: 20110729
  Transmission Date: 20120825
  Serious: No
  Sender: FDA-Public Use
  Company Number: US-ASTRAZENECA-2011SE55043

PATIENT
  Sex: Female

DRUGS (2)
  1. DIURETICS [Concomitant]
  2. PRILOSEC OTC [Suspect]
     Route: 048
     Dates: start: 20110201, end: 20110701

REACTIONS (3)
  - CONSTIPATION [None]
  - INCORRECT DRUG ADMINISTRATION DURATION [None]
  - HAEMORRHOIDS [None]
